FAERS Safety Report 21919335 (Version 2)
Quarter: 2023Q1

REPORT INFORMATION
  Report Type: Spontaneous
  Country: DK (occurrence: DK)
  Receive Date: 20230127
  Receipt Date: 20230306
  Transmission Date: 20230417
  Serious: Yes (Hospitalization)
  Sender: FDA-Public Use
  Company Number: DK-MYLANLABS-2023M1007934

PATIENT
  Age: 62 Year
  Sex: Male

DRUGS (15)
  1. PANTOPRAZOLE [Suspect]
     Active Substance: PANTOPRAZOLE
     Indication: Enterocolitis
     Dosage: 80 MILLIGRAM, QD
     Route: 065
  2. INFLIXIMAB [Suspect]
     Active Substance: INFLIXIMAB
     Indication: Enterocolitis
     Dosage: 5 MILLIGRAM/KILOGRAM
     Route: 065
  3. INFLIXIMAB [Suspect]
     Active Substance: INFLIXIMAB
     Dosage: 10 MILLIGRAM/KILOGRAM
     Route: 065
  4. VEDOLIZUMAB [Suspect]
     Active Substance: VEDOLIZUMAB
     Indication: Enterocolitis
     Dosage: 300 MILLIGRAM
     Route: 065
  5. LOPERAMIDE [Suspect]
     Active Substance: LOPERAMIDE
     Indication: Enterocolitis
     Dosage: 24 MILLIGRAM, QD
     Route: 065
  6. OCTREOTIDE [Suspect]
     Active Substance: OCTREOTIDE
     Indication: Enterocolitis
     Dosage: 100 MICROGRAM, QD
     Route: 065
  7. OPIUM [Suspect]
     Active Substance: OPIUM
     Indication: Enterocolitis
     Dosage: 5 MILLIGRAM (12TIMES/DAY)
     Route: 065
  8. CHOLESTYRAMINE [Suspect]
     Active Substance: CHOLESTYRAMINE
     Indication: Enterocolitis
     Dosage: 12 GRAM, QD
     Route: 065
  9. LEVETIRACETAM [Concomitant]
     Active Substance: LEVETIRACETAM
     Indication: Epilepsy
     Dosage: UNK
     Route: 065
  10. PREDNISOLONE [Concomitant]
     Active Substance: PREDNISOLONE
     Indication: Product used for unknown indication
     Dosage: UNK
     Route: 065
  11. METHYLPREDNISOLONE [Concomitant]
     Active Substance: METHYLPREDNISOLONE
     Indication: Product used for unknown indication
     Dosage: 1 MILLIGRAM/KILOGRAM
     Route: 065
  12. METHYLPREDNISOLONE [Concomitant]
     Active Substance: METHYLPREDNISOLONE
     Dosage: UNK (DOSE DECREASED)
     Route: 065
  13. TRIMETHOPRIM [Concomitant]
     Active Substance: TRIMETHOPRIM
     Indication: Urinary tract infection
     Dosage: 200 MILLIGRAM, BID
     Route: 065
  14. CEFUROXIME [Concomitant]
     Active Substance: CEFUROXIME
     Indication: Urinary tract infection
     Dosage: 1.5 GRAM, TID
     Route: 065
  15. TOFACITINIB [Concomitant]
     Active Substance: TOFACITINIB
     Indication: Diarrhoea
     Dosage: 10 MILLIGRAM, BID
     Route: 065

REACTIONS (1)
  - Drug ineffective [Unknown]
